APPROVED DRUG PRODUCT: PLAN B
Active Ingredient: LEVONORGESTREL
Strength: 0.75MG **Federal Register determination that product was not discontinued or withdrawn for safety or effectiveness reasons**
Dosage Form/Route: TABLET;ORAL
Application: N021045 | Product #001
Applicant: FOUNDATION CONSUMER HEALTHCARE LLC
Approved: Jul 28, 1999 | RLD: Yes | RS: No | Type: DISCN